FAERS Safety Report 4429875-7 (Version None)
Quarter: 2004Q3

REPORT INFORMATION
  Report Type: 
  Country: None (occurrence: None)
  Receive Date: 20040816
  Receipt Date: 20040803
  Transmission Date: 20050211
  Serious: Yes (Hospitalization)
  Sender: FDA-Public Use
  Company Number: 2004052951

PATIENT
  Age: 83 Year
  Sex: Female

DRUGS (9)
  1. NORVASC [Suspect]
     Indication: HYPERTENSION
     Dosage: ORAL
     Route: 048
     Dates: end: 20040630
  2. BLINDED THERAPY (BLINDED THERAPY) [Suspect]
     Indication: ILL-DEFINED DISORDER
     Dates: start: 20040419
  3. DIGOXIN [Suspect]
     Indication: ILL-DEFINED DISORDER
     Dates: end: 20040706
  4. FUROSEMIDE [Suspect]
     Indication: ILL-DEFINED DISORDER
     Dates: end: 20040701
  5. LERCANIDINE HYDROCHLORIDE (LERCANIDINE HYDROCHLORIDE) [Concomitant]
  6. ENALAPRIL MALEATE [Concomitant]
  7. SPIRONOLACTONE [Concomitant]
  8. CARVEDILOL [Concomitant]
  9. ASPIRIN [Concomitant]

REACTIONS (5)
  - ATRIAL FIBRILLATION [None]
  - CONDITION AGGRAVATED [None]
  - DIZZINESS [None]
  - NAUSEA [None]
  - VOMITING [None]
